FAERS Safety Report 10578332 (Version 1)
Quarter: 2014Q4

REPORT INFORMATION
  Report Type: Spontaneous
  Country: US (occurrence: None)
  Receive Date: 20141111
  Receipt Date: 20141111
  Transmission Date: 20150529
  Serious: Yes (Hospitalization)
  Sender: FDA-Public Use
  Company Number: None

PATIENT
  Age: 64 Year
  Sex: Male
  Weight: 90 kg

DRUGS (2)
  1. IFOSFAMIDE/MESNA [Suspect]
     Active Substance: IFOSFAMIDE\MESNA
     Indication: DIFFUSE LARGE B-CELL LYMPHOMA RECURRENT
     Route: 042
     Dates: start: 20141031, end: 20141101
  2. IFOSFAMIDE/MESNA [Suspect]
     Active Substance: IFOSFAMIDE\MESNA
     Indication: DIFFUSE LARGE B-CELL LYMPHOMA RECURRENT
     Dosage: 435 MG PERHOUR IV
     Route: 042
     Dates: start: 20141006, end: 20141007

REACTIONS (1)
  - Delirium [None]

NARRATIVE: CASE EVENT DATE: 20141006
